FAERS Safety Report 6937008 (Version 2)
Quarter: 2013Q1

REPORT INFORMATION
  Report Type: Spontaneous
  Country: CN (occurrence: CN)
  Receive Date: 20090313
  Receipt Date: 20130110
  Transmission Date: 20140127
  Serious: No
  Sender: FDA-Public Use
  Company Number: PHHY2009CN07203

PATIENT
  Sex: Male

DRUGS (2)
  1. SEBIVO [Suspect]
     Indication: HEPATITIS B
     Dosage: 600 MG, QD
     Route: 048
     Dates: start: 20080513, end: 20081213
  2. ENTECAVIR [Concomitant]
     Dosage: UNK

REACTIONS (2)
  - Psoriasis [Recovered/Resolved]
  - Dermatitis [Recovered/Resolved]
